FAERS Safety Report 19812590 (Version 1)
Quarter: 2021Q3

REPORT INFORMATION
  Report Type: Spontaneous
  Country: GB (occurrence: GB)
  Receive Date: 20210910
  Receipt Date: 20210910
  Transmission Date: 20211014
  Serious: Yes (Other)
  Sender: FDA-Public Use
  Company Number: GB-PFIZER INC-202101138006

PATIENT
  Age: 26 Year
  Sex: Female
  Weight: 50 kg

DRUGS (5)
  1. SAYANA PRESS [Suspect]
     Active Substance: MEDROXYPROGESTERONE\MEDROXYPROGESTERONE ACETATE
     Indication: CONTRACEPTION
     Dosage: UNK (104 MG / 0.65ML)
     Route: 058
     Dates: start: 20210831, end: 20210831
  2. TOPIRAMATE. [Concomitant]
     Active Substance: TOPIRAMATE
     Indication: ILL-DEFINED DISORDER
     Dosage: 2 DF, 2X/DAY (TWO TABLETS TWICE DAILY)
     Dates: start: 20210223
  3. MEDROXYPROGESTERONE [Suspect]
     Active Substance: MEDROXYPROGESTERONE
     Indication: ILL-DEFINED DISORDER
     Dosage: UNK
     Dates: start: 20210831
  4. ALMOTRIPTAN. [Concomitant]
     Active Substance: ALMOTRIPTAN
     Indication: ILL-DEFINED DISORDER
     Dosage: 1 DF (1 TABLET AT START OF MIGRAINE, IF HEADACHE GOES...)
     Dates: start: 20210223
  5. DEPO?PROVERA [Concomitant]
     Active Substance: MEDROXYPROGESTERONE ACETATE
     Indication: ILL-DEFINED DISORDER
     Dosage: UNK (USE AS DIRECTED)
     Route: 030
     Dates: start: 20210223

REACTIONS (2)
  - Throat tightness [Recovered/Resolved]
  - Flushing [Recovered/Resolved]

NARRATIVE: CASE EVENT DATE: 20210831
